FAERS Safety Report 5890764-2 (Version None)
Quarter: 2008Q3

REPORT INFORMATION
  Report Type: 
  Country: None (occurrence: None)
  Receive Date: 20080922
  Receipt Date: 20080910
  Transmission Date: 20090109
  Serious: Yes (Hospitalization)
  Sender: FDA-Public Use
  Company Number: US-BAYER-200813267BCC

PATIENT
  Age: 83 Year
  Sex: Female
  Weight: 71 kg

DRUGS (7)
  1. ASPIRIN [Suspect]
     Indication: DRUG USE FOR UNKNOWN INDICATION
     Dosage: TOTAL DAILY DOSE: 81 MG  UNIT DOSE: 81 MG
     Route: 048
     Dates: start: 20071201, end: 20080101
  2. WARFARIN SODIUM [Suspect]
     Indication: ATRIAL FLUTTER
     Dosage: TOTAL DAILY DOSE: 5 MG  UNIT DOSE: 5 MG
     Route: 048
     Dates: start: 20071201
  3. ZANTAC [Concomitant]
  4. HYDROCHLOROTHIAZIDE [Concomitant]
  5. LISINOPRIL [Concomitant]
  6. NICODERM [Concomitant]
  7. COMBIVENT [Concomitant]

REACTIONS (9)
  - ALOPECIA [None]
  - FATIGUE [None]
  - FEELING COLD [None]
  - HAEMORRHAGE [None]
  - MUSCULAR WEAKNESS [None]
  - NAUSEA [None]
  - PRURITUS [None]
  - SKIN DISORDER [None]
  - UNEVALUABLE EVENT [None]
